FAERS Safety Report 17310384 (Version 2)
Quarter: 2021Q1

REPORT INFORMATION
  Report Type: Spontaneous
  Country: US (occurrence: US)
  Receive Date: 20200123
  Receipt Date: 20210115
  Transmission Date: 20210419
  Serious: Yes (Other)
  Sender: FDA-Public Use
  Company Number: US-ROCHE-2416901

PATIENT
  Sex: Female

DRUGS (1)
  1. RITUXAN [Suspect]
     Active Substance: RITUXIMAB
     Indication: MULTIPLE SCLEROSIS
     Route: 065

REACTIONS (11)
  - Rash [Unknown]
  - Micturition disorder [Unknown]
  - Breast ulceration [Unknown]
  - Abscess [Unknown]
  - Intentional product use issue [Unknown]
  - Exposure to SARS-CoV-2 [Unknown]
  - Blister [Unknown]
  - Fatigue [Unknown]
  - Off label use [Unknown]
  - Drug hypersensitivity [Unknown]
  - Migraine [Unknown]
